FAERS Safety Report 15183375 (Version 4)
Quarter: 2018Q3

REPORT INFORMATION
  Report Type: Report from Study
  Country: BR (occurrence: BR)
  Receive Date: 20180723
  Receipt Date: 20180927
  Transmission Date: 20181010
  Serious: Yes (Death, Life-Threatening, Hospitalization, Disabling)
  Sender: FDA-Public Use
  Company Number: PHHO2018BR008237

PATIENT
  Age: 68 Year
  Sex: Male

DRUGS (5)
  1. ELTROMBOPAG [Suspect]
     Active Substance: ELTROMBOPAG
     Indication: APLASTIC ANAEMIA
     Dosage: 150 MG, QD
     Route: 048
     Dates: start: 20180709, end: 20180710
  2. ONDANSETRON HYDROCHLORIDE. [Concomitant]
     Active Substance: ONDANSETRON HYDROCHLORIDE
     Indication: PRODUCT USED FOR UNKNOWN INDICATION
     Dosage: 36 MG, TID
     Route: 048
     Dates: start: 20180714
  3. MAGNESIUM OXIDE. [Concomitant]
     Active Substance: MAGNESIUM OXIDE
     Indication: HYPOMAGNESAEMIA
     Dosage: 560 MG, BID
     Route: 048
     Dates: start: 20180608
  4. CYCLOSPORINE A [Suspect]
     Active Substance: CYCLOSPORINE
     Indication: APLASTIC ANAEMIA
     Dosage: 250 MG, BID
     Route: 048
     Dates: start: 20180621, end: 20180710
  5. BROMOPRIDA [Concomitant]
     Indication: NAUSEA
     Dosage: 20 MG, BID
     Route: 048
     Dates: start: 20180613

REACTIONS (8)
  - Cardiac arrest [Recovered/Resolved]
  - Febrile neutropenia [Recovering/Resolving]
  - Hypoxic-ischaemic encephalopathy [Not Recovered/Not Resolved]
  - Blood bilirubin increased [Not Recovered/Not Resolved]
  - Renal injury [Not Recovered/Not Resolved]
  - Cardio-respiratory arrest [Fatal]
  - Sepsis [Not Recovered/Not Resolved]
  - Septic shock [Fatal]

NARRATIVE: CASE EVENT DATE: 20180708
